FAERS Safety Report 10341819 (Version 1)
Quarter: 2014Q3

REPORT INFORMATION
  Report Type: Spontaneous
  Country: CA (occurrence: CA)
  Receive Date: 20140725
  Receipt Date: 20140725
  Transmission Date: 20150326
  Serious: Yes (Hospitalization)
  Sender: FDA-Public Use
  Company Number: CA-MYLANLABS-2014S1016746

PATIENT
  Age: 43 Year
  Sex: Female

DRUGS (2)
  1. DIMETHYL SULFOXIDE [Suspect]
     Active Substance: DIMETHYL SULFOXIDE
     Indication: STEM CELL TRANSPLANT
     Dosage: INFUSION; GRAFT CONSISTED OF 4 BAGS (323ML) WITH 10% DIMETHYL SULFOXIDE 0.58G/KG; 1ST BAG 0.14G/KG
     Route: 050
     Dates: start: 201008
  2. DIMETHYL SULFOXIDE [Suspect]
     Active Substance: DIMETHYL SULFOXIDE
     Indication: OFF LABEL USE
     Dosage: INFUSION; GRAFT CONSISTED OF 4 BAGS (323ML) WITH 10% DIMETHYL SULFOXIDE 0.58G/KG; 1ST BAG 0.14G/KG
     Route: 050
     Dates: start: 201008

REACTIONS (5)
  - Prinzmetal angina [Recovered/Resolved]
  - Haemodynamic instability [Unknown]
  - Vomiting [Unknown]
  - Nausea [Unknown]
  - Hyperhidrosis [Unknown]
